FAERS Safety Report 23462003 (Version 1)
Quarter: 2024Q1

REPORT INFORMATION
  Report Type: Spontaneous
  Country: CO (occurrence: CO)
  Receive Date: 20240131
  Receipt Date: 20240131
  Transmission Date: 20240410
  Serious: Yes (Other)
  Sender: FDA-Public Use
  Company Number: CO-BIOMARINAP-CO-2024-155509

PATIENT

DRUGS (6)
  1. NAGLAZYME [Suspect]
     Active Substance: GALSULFASE
     Indication: Mucopolysaccharidosis VI
     Dosage: 20 MILLIGRAM, QW
     Route: 042
     Dates: start: 20171128
  2. SPIRONOLACTONE [Concomitant]
     Active Substance: SPIRONOLACTONE
     Indication: Product used for unknown indication
     Dosage: 1 TABLET, QD
  3. FUROSEMIDE [Concomitant]
     Active Substance: FUROSEMIDE
     Indication: Product used for unknown indication
     Dosage: 1/2 TABLET, QD
  4. ENALAPRIL [Concomitant]
     Active Substance: ENALAPRIL
     Indication: Product used for unknown indication
     Dosage: 1/2 TABLET, BID
  5. ALENDRONATE [Concomitant]
     Active Substance: ALENDRONATE SODIUM
     Indication: Product used for unknown indication
     Dosage: 1/2 TABLED, QW
  6. BISACODYL [Concomitant]
     Active Substance: BISACODYL
     Indication: Constipation
     Dosage: 1 TABLET, QD

REACTIONS (10)
  - Foramen magnum stenosis [Unknown]
  - Myelopathy [Unknown]
  - Benign enlargement of the subarachnoid spaces [Unknown]
  - Myelomalacia [Unknown]
  - Ligamentum flavum hypertrophy [Unknown]
  - Osteoporotic fracture [Unknown]
  - Spinal fracture [Unknown]
  - Osteopenia [Unknown]
  - Spondylolisthesis [Unknown]
  - Spinal cord injury [Unknown]
